FAERS Safety Report 26001153 (Version 1)
Quarter: 2025Q4

REPORT INFORMATION
  Report Type: Spontaneous
  Country: JP (occurrence: JP)
  Receive Date: 20251105
  Receipt Date: 20251105
  Transmission Date: 20260119
  Serious: Yes (Other)
  Sender: PFIZER
  Company Number: JP-GENMAB-2025-03126

PATIENT
  Sex: Female

DRUGS (4)
  1. TIVDAK [Suspect]
     Active Substance: TISOTUMAB VEDOTIN-TFTV
     Indication: Cervix carcinoma
     Dosage: 2 MILLIGRAM/KILOGRAM
     Route: 042
     Dates: start: 20250714, end: 202509
  2. TIVDAK [Suspect]
     Active Substance: TISOTUMAB VEDOTIN-TFTV
     Dosage: 2 MILLIGRAM/KILOGRAM, RESUMED
     Route: 042
     Dates: start: 20251017
  3. CEMIPLIMAB [Suspect]
     Active Substance: CEMIPLIMAB
     Indication: Cervix carcinoma
     Dosage: UNK
  4. BRIMONIDINE TARTRATE [Concomitant]
     Active Substance: BRIMONIDINE TARTRATE
     Indication: Eye disorder prophylaxis
     Dosage: UNK, EYE DROPS
     Dates: start: 20250714

REACTIONS (2)
  - Cholangitis [Recovered/Resolved]
  - Hepatic enzyme increased [Unknown]

NARRATIVE: CASE EVENT DATE: 20250101
